FAERS Safety Report 6950906-4 (Version None)
Quarter: 2010Q3

REPORT INFORMATION
  Report Type: 
  Country: None (occurrence: None)
  Receive Date: 20100828
  Receipt Date: 20100301
  Transmission Date: 20110219
  Serious: No
  Sender: FDA-Public Use
  Company Number: US-ABBOTT-10P-163-0629939-00

PATIENT
  Weight: 93.07 kg

DRUGS (2)
  1. NIASPAN [Suspect]
     Indication: BLOOD CHOLESTEROL
     Route: 048
  2. NIASPAN [Suspect]
     Route: 048
     Dates: start: 20040101

REACTIONS (1)
  - INCORRECT DOSE ADMINISTERED [None]
